FAERS Safety Report 5313097-1 (Version None)
Quarter: 2007Q1

REPORT INFORMATION
  Report Type: 
  Country: None (occurrence: None)
  Receive Date: 20070201
  Receipt Date: 20061122
  Transmission Date: 20070707
  Serious: No
  Sender: FDA-Public Use
  Company Number: VNL_0304_2006

PATIENT
  Age: 78 Year
  Sex: Male
  Weight: 72.5755 kg

DRUGS (23)
  1. APOKYN [Suspect]
     Indication: PARKINSON'S DISEASE
     Dosage: 0.2 ML ONCE SC
     Route: 058
     Dates: start: 20061120, end: 20061120
  2. APOKYN [Suspect]
     Indication: PARKINSON'S DISEASE
     Dosage: 0.4 ML SC
     Route: 058
     Dates: start: 20061120
  3. NEURONTIN [Concomitant]
  4. LEVOXYL [Concomitant]
  5. ASPIRIN [Concomitant]
  6. ASCORBIC ACID [Concomitant]
  7. MULTIVITAMIN /00831701/ [Concomitant]
  8. VITAMIN E [Concomitant]
  9. PREVACID [Concomitant]
  10. PRELIES (OTC) [Concomitant]
  11. WELLBUTRIN XL [Concomitant]
  12. CELEBREX [Concomitant]
  13. STOOL 'SOFTNER'/LAXATIVE COMBINATION [Concomitant]
  14. ARICEPT [Concomitant]
  15. OMEGA 3 [Concomitant]
  16. ZONISAMIDE [Concomitant]
  17. GINGER ROOT [Concomitant]
  18. FOLIC ACID [Concomitant]
  19. MAGNESIUM OXIDE [Concomitant]
  20. LAXATIVE [Concomitant]
  21. REQUIP [Concomitant]
  22. COMTAN [Concomitant]
  23. SINEMET [Concomitant]

REACTIONS (4)
  - DRUG INEFFECTIVE [None]
  - FATIGUE [None]
  - FEELING ABNORMAL [None]
  - PHARMACEUTICAL PRODUCT COMPLAINT [None]
